FAERS Safety Report 14210695 (Version 1)
Quarter: 2017Q4

REPORT INFORMATION
  Report Type: Not Available
  Country: JP (occurrence: JP)
  Receive Date: 20171121
  Receipt Date: 20171121
  Transmission Date: 20180321
  Serious: Yes (Other)
  Sender: FDA-Public Use
  Company Number: JP-AKORN-72985

PATIENT
  Age: 69 Year
  Sex: Male

DRUGS (1)
  1. TAPROS (TAFLUPROST) [Suspect]
     Active Substance: TAFLUPROST

REACTIONS (4)
  - Visual impairment [Unknown]
  - Visual field defect [Unknown]
  - Cataract operation [Unknown]
  - Abnormal sensation in eye [Unknown]
